FAERS Safety Report 18376636 (Version 7)
Quarter: 2021Q1

REPORT INFORMATION
  Report Type: Spontaneous
  Country: US (occurrence: US)
  Receive Date: 20201013
  Receipt Date: 20210324
  Transmission Date: 20210419
  Serious: Yes (Other)
  Sender: FDA-Public Use
  Company Number: US-GLAXOSMITHKLINE-US2020AMR202719

PATIENT
  Sex: Female

DRUGS (6)
  1. ZEJULA [Suspect]
     Active Substance: NIRAPARIB
     Dosage: 200 MG, QD
  2. ZEJULA [Suspect]
     Active Substance: NIRAPARIB
     Dosage: 200 MG, QD
     Route: 048
  3. ZEJULA [Suspect]
     Active Substance: NIRAPARIB
     Indication: OVARIAN CANCER
     Dosage: 100 MG, QD
     Dates: start: 20200925
  4. ZEJULA [Suspect]
     Active Substance: NIRAPARIB
     Dosage: 200 MG, QD
     Route: 048
  5. ZEJULA [Suspect]
     Active Substance: NIRAPARIB
     Dosage: 200 MG, QD
     Dates: start: 20200929
  6. ZEJULA [Suspect]
     Active Substance: NIRAPARIB
     Dosage: 200 MG, QD
     Route: 048

REACTIONS (14)
  - White blood cell count decreased [Recovering/Resolving]
  - Insomnia [Unknown]
  - Sinusitis [Unknown]
  - Palpitations [Recovered/Resolved]
  - Product dose omission issue [Unknown]
  - Dry eye [Unknown]
  - Asthenia [Not Recovered/Not Resolved]
  - Hunger [Unknown]
  - Heart rate increased [Recovering/Resolving]
  - Cardiac flutter [Unknown]
  - Malaise [Unknown]
  - Platelet count decreased [Recovering/Resolving]
  - Headache [Unknown]
  - Eye disorder [Unknown]
